FAERS Safety Report 8021054-X (Version None)
Quarter: 2011Q4

REPORT INFORMATION
  Report Type: 
  Country: None (occurrence: None)
  Receive Date: 20111229
  Receipt Date: 20111229
  Transmission Date: 20120403
  Serious: No
  Sender: FDA-Public Use
  Company Number: None

PATIENT
  Age: 78 Year
  Sex: Female
  Weight: 56.6996 kg

DRUGS (1)
  1. CIPROFLOXACIN [Suspect]
     Indication: CYSTITIS
     Dosage: TAKEN FOR 7 DAYS 2 PER DAY MOUTH
     Route: 048
     Dates: start: 20111129, end: 20111205

REACTIONS (2)
  - RASH ERYTHEMATOUS [None]
  - PRURITUS [None]
